FAERS Safety Report 7387764-2 (Version None)
Quarter: 2011Q1

REPORT INFORMATION
  Report Type: 
  Country: None (occurrence: None)
  Receive Date: 20110331
  Receipt Date: 20110318
  Transmission Date: 20110831
  Serious: Yes (Death)
  Sender: FDA-Public Use
  Company Number: US-CELGENEUS-163-21880-11032322

PATIENT

DRUGS (1)
  1. LENALIDOMIDE [Suspect]
     Route: 048

REACTIONS (1)
  - DEATH [None]
